FAERS Safety Report 22177265 (Version 1)
Quarter: 2023Q2

REPORT INFORMATION
  Report Type: Spontaneous
  Country: US (occurrence: None)
  Receive Date: 20230404
  Receipt Date: 20230404
  Transmission Date: 20230721
  Serious: No
  Sender: FDA-Public Use
  Company Number: None

PATIENT
  Sex: Male

DRUGS (1)
  1. KESIMPTA [Suspect]
     Active Substance: OFATUMUMAB
     Indication: Multiple sclerosis
     Dosage: FREQUENCY : MONTHLY;?
     Route: 058
     Dates: start: 202303

REACTIONS (7)
  - Injection site bruising [None]
  - Injection site discolouration [None]
  - Cough [None]
  - Headache [None]
  - Drug ineffective [None]
  - Liver function test abnormal [None]
  - Malaise [None]
